FAERS Safety Report 4527221-1 (Version None)
Quarter: 2004Q4

REPORT INFORMATION
  Report Type: 
  Country: None (occurrence: None)
  Receive Date: 20041215
  Receipt Date: 20041203
  Transmission Date: 20050328
  Serious: Yes (Other)
  Sender: FDA-Public Use
  Company Number: PHBS2004TR16485

PATIENT
  Sex: Male

DRUGS (2)
  1. DIAZEM [Concomitant]
     Route: 030
  2. VOLTAREN [Suspect]
     Indication: PYREXIA
     Dosage: UNK, ONCE/SINGLE
     Route: 030

REACTIONS (1)
  - NEUROPATHY [None]
